FAERS Safety Report 14715299 (Version 1)
Quarter: 2018Q2

REPORT INFORMATION
  Report Type: Spontaneous
  Country: CN (occurrence: CN)
  Receive Date: 20180404
  Receipt Date: 20180404
  Transmission Date: 20180711
  Serious: Yes (Hospitalization, Other)
  Sender: FDA-Public Use
  Company Number: CN-PFIZER INC-2018134477

PATIENT
  Age: 74 Year
  Sex: Male
  Weight: 68 kg

DRUGS (4)
  1. EDARAVONE [Concomitant]
     Active Substance: EDARAVONE
     Indication: NUTRITIONAL SUPPLEMENTATION
     Dosage: 30 MG, 2X/DAY
     Route: 041
     Dates: start: 20180124, end: 20180202
  2. SODIUM CHLORIDE. [Concomitant]
     Active Substance: SODIUM CHLORIDE
     Indication: VEHICLE SOLUTION USE
     Dosage: 100 ML, 2X/DAY
     Route: 041
     Dates: start: 20180124, end: 20180202
  3. DABIGATRAN [Concomitant]
     Active Substance: DABIGATRAN
     Indication: COAGULOPATHY
     Dosage: 110 MG, 2X/DAY
     Route: 048
     Dates: start: 20180124, end: 20180202
  4. LIPITOR [Suspect]
     Active Substance: ATORVASTATIN CALCIUM
     Indication: ARTERIOSCLEROSIS
     Dosage: 20 MG, 1X/DAY
     Route: 048
     Dates: start: 20180124, end: 20180130

REACTIONS (2)
  - Myocardial necrosis marker increased [Recovering/Resolving]
  - Myalgia [Recovering/Resolving]

NARRATIVE: CASE EVENT DATE: 20180131
